FAERS Safety Report 15817756 (Version 1)
Quarter: 2019Q1

REPORT INFORMATION
  Report Type: Spontaneous
  Country: US (occurrence: US)
  Receive Date: 20190113
  Receipt Date: 20190113
  Transmission Date: 20190417
  Serious: No
  Sender: FDA-Public Use
  Company Number: US-TEVA-2018-US-989196

PATIENT
  Sex: Female

DRUGS (1)
  1. PROAIR HFA [Suspect]
     Active Substance: ALBUTEROL SULFATE
     Route: 065

REACTIONS (4)
  - Inappropriate schedule of product administration [Unknown]
  - Anxiety [Unknown]
  - Heart rate increased [Unknown]
  - Device issue [Unknown]

NARRATIVE: CASE EVENT DATE: 201812
